FAERS Safety Report 25978394 (Version 1)
Quarter: 2025Q4

REPORT INFORMATION
  Report Type: Spontaneous
  Country: KR (occurrence: KR)
  Receive Date: 20251030
  Receipt Date: 20251030
  Transmission Date: 20260118
  Serious: Yes (Hospitalization, Other)
  Sender: Kenvue
  Company Number: KR-KENVUE-20251009246

PATIENT

DRUGS (2)
  1. TYLENOL 8HR [Suspect]
     Active Substance: ACETAMINOPHEN
     Indication: Allergy test
     Dosage: 650 MILLIGRAM, ONCE A DAY (650MG / 1DAY)
     Route: 048
     Dates: start: 20230816, end: 20230816
  2. CELECOXIB [Suspect]
     Active Substance: CELECOXIB
     Indication: Allergy test
     Dosage: 200 MILLIGRAM, ONCE A DAY (200MG / 1DAY)
     Route: 048
     Dates: start: 20230816, end: 20230816

REACTIONS (6)
  - Dermatitis bullous [Recovering/Resolving]
  - Pruritus [Recovering/Resolving]
  - Nausea [Recovering/Resolving]
  - Vomiting [Recovering/Resolving]
  - Dizziness [Recovering/Resolving]
  - Urticaria [Recovering/Resolving]

NARRATIVE: CASE EVENT DATE: 20230816
